FAERS Safety Report 10562216 (Version 1)
Quarter: 2014Q4

REPORT INFORMATION
  Report Type: Spontaneous
  Country: GB (occurrence: None)
  Receive Date: 20141031
  Receipt Date: 20141031
  Transmission Date: 20150529
  Serious: Yes (Other)
  Sender: FDA-Public Use
  Company Number: GB-DEXPHARM-20140675

PATIENT
  Age: 49 Year
  Sex: Female

DRUGS (2)
  1. ESCITALOPRAM [Suspect]
     Active Substance: ESCITALOPRAM OXALATE
     Indication: DEPRESSION
     Dosage: SEP. DOSAGES / INTERVAL: 1 IN 1 DAYS
  2. OMEPRAZOLE. [Suspect]
     Active Substance: OMEPRAZOLE
     Indication: GASTRITIS
     Dosage: 3CP DOSAGES / INTERVAL: 1 IN 1 DAYS
     Dates: start: 20140820, end: 20141007

REACTIONS (2)
  - Drug interaction [None]
  - Serotonin syndrome [None]
